FAERS Safety Report 7926649-7 (Version None)
Quarter: 2011Q4

REPORT INFORMATION
  Report Type: 
  Country: None (occurrence: None)
  Receive Date: 20111118
  Receipt Date: 20111109
  Transmission Date: 20120403
  Serious: Yes (Other)
  Sender: FDA-Public Use
  Company Number: GB-ASTELLAS-2011EU002439

PATIENT
  Sex: Female
  Weight: 43 kg

DRUGS (7)
  1. TACROLIMUS [Suspect]
     Indication: DERMATITIS ATOPIC
     Dosage: 0.03 %, BID
     Route: 061
     Dates: start: 20080625
  2. EPADERM [Concomitant]
     Indication: DERMATITIS ATOPIC
     Dosage: UNK
     Route: 061
     Dates: start: 20070118
  3. ELOCON [Concomitant]
     Indication: DERMATITIS ATOPIC
     Dosage: UNK
     Route: 061
     Dates: start: 20090113
  4. TACROLIMUS [Suspect]
     Dosage: 0.1 %, PRN
     Route: 061
     Dates: start: 20110128
  5. TACROLIMUS [Suspect]
     Dosage: 0.03 %, PRN
     Route: 061
     Dates: start: 20080625
  6. OILATUM [Concomitant]
     Indication: DERMATITIS ATOPIC
     Dosage: UNK
     Route: 061
     Dates: start: 20060726
  7. DERMOL SOL [Concomitant]
     Indication: DERMATITIS ATOPIC
     Dosage: UNK
     Route: 061
     Dates: start: 20090113

REACTIONS (3)
  - OFF LABEL USE [None]
  - LYMPHADENOPATHY [None]
  - ECZEMA INFECTED [None]
